FAERS Safety Report 24905556 (Version 1)
Quarter: 2025Q1

REPORT INFORMATION
  Report Type: Spontaneous
  Country: IN (occurrence: IN)
  Receive Date: 20250130
  Receipt Date: 20250130
  Transmission Date: 20250409
  Serious: Yes (Death, Other)
  Sender: FRESENIUS KABI
  Company Number: IN-FreseniusKabi-FK202501522

PATIENT
  Age: 70 Year
  Sex: Male
  Weight: 60 kg

DRUGS (3)
  1. SMOFLIPID [Suspect]
     Active Substance: FISH OIL\MEDIUM-CHAIN TRIGLYCERIDES\OLIVE OIL\SOYBEAN OIL
     Indication: Parenteral nutrition
     Dosage: OD?OVER 4 HOURS
     Route: 042
     Dates: start: 20241124, end: 20241222
  2. AMINO ACIDS, SOURCE UNSPECIFIED [Suspect]
     Active Substance: AMINO ACIDS, SOURCE UNSPECIFIED
     Indication: Parenteral nutrition
     Dosage: OD
     Route: 042
  3. STERIMINO 10 PERCENT 500 ml [Concomitant]
     Indication: Parenteral nutrition
     Dosage: OD

REACTIONS (1)
  - Cerebral haemorrhage [Fatal]
